FAERS Safety Report 7109174-5 (Version None)
Quarter: 2010Q4

REPORT INFORMATION
  Report Type: 
  Country: None (occurrence: None)
  Receive Date: 20101117
  Receipt Date: 20101104
  Transmission Date: 20110411
  Serious: Yes (Hospitalization)
  Sender: FDA-Public Use
  Company Number: US-ELI_LILLY_AND_COMPANY-US201011000246

PATIENT
  Sex: Female

DRUGS (7)
  1. FORTEO [Suspect]
     Indication: OSTEOPOROSIS
     Dosage: 20 UG, DAILY (1/D)
     Dates: start: 20101010
  2. FORTEO [Suspect]
     Dosage: 20 UG, DAILY (1/D)
     Dates: start: 20101010
  3. XANAX [Concomitant]
     Dosage: 1 MG, EACH EVENING
  4. CALCIUM [Concomitant]
     Dosage: UNK, DAILY (1/D)
  5. VITAMIN D [Concomitant]
     Dosage: UNK, DAILY (1/D)
  6. LEVOTHYROXINE SODIUM [Concomitant]
  7. MULTI-VITAMIN [Concomitant]

REACTIONS (18)
  - ANXIETY [None]
  - BACK PAIN [None]
  - BLOOD PRESSURE INCREASED [None]
  - BRONCHITIS [None]
  - CHEST DISCOMFORT [None]
  - CHEST PAIN [None]
  - DIZZINESS [None]
  - HEADACHE [None]
  - INFLUENZA [None]
  - INJECTION SITE HAEMATOMA [None]
  - INJECTION SITE MASS [None]
  - MEDICATION ERROR [None]
  - MOVEMENT DISORDER [None]
  - NECK PAIN [None]
  - OSTEOPOROSIS [None]
  - OVERDOSE [None]
  - PHARYNGITIS STREPTOCOCCAL [None]
  - TENSION [None]
